FAERS Safety Report 5478454-1 (Version None)
Quarter: 2007Q4

REPORT INFORMATION
  Report Type: 
  Country: None (occurrence: None)
  Receive Date: 20071005
  Receipt Date: 20070925
  Transmission Date: 20080405
  Serious: Yes (Hospitalization)
  Sender: FDA-Public Use
  Company Number: US-ROCHE-446191

PATIENT
  Age: 53 Year
  Sex: Male
  Weight: 96.4 kg

DRUGS (23)
  1. PEG-INTERFERON ALFA 2A (RO 25-8310) [Suspect]
     Indication: HEPATITIS C
     Route: 058
     Dates: start: 20060303
  2. PEG-INTERFERON ALFA 2A (RO 25-8310) [Suspect]
     Route: 058
     Dates: end: 20060427
  3. PEG-INTERFERON ALFA 2A (RO 25-8310) [Suspect]
     Route: 058
     Dates: start: 20060505, end: 20060531
  4. PEG-INTERFERON ALFA 2A (RO 25-8310) [Suspect]
     Route: 058
     Dates: end: 20060706
  5. RIBAVIRIN [Suspect]
     Indication: HEPATITIS C
     Dosage: DOSE WAS INCREASED TO 1200 MG DAILY ON AN UNSPECIFIED DATE.
     Route: 048
     Dates: start: 20060303
  6. RIBAVIRIN [Suspect]
     Route: 048
     Dates: end: 20060427
  7. RIBAVIRIN [Suspect]
     Route: 048
     Dates: start: 20060429, end: 20060621
  8. RIBAVIRIN [Suspect]
     Dosage: FORM REPORTED AS PILL.
     Route: 048
     Dates: end: 20060706
  9. LABETALOL [Suspect]
     Indication: HYPERTENSION
     Route: 065
     Dates: start: 20051118, end: 20060428
  10. CALCIUM [Concomitant]
     Dates: start: 20051118
  11. BACTRIM [Concomitant]
     Dosage: REPORTED AS 160 MG WEEKLY AND 80 MG DAILY.
     Dates: start: 20051118
  12. TRAMADOL HCL [Concomitant]
     Dates: start: 20051128
  13. MAGNESIUM SULFATE [Concomitant]
     Dates: start: 20051205
  14. LACTULOSE [Concomitant]
     Dates: start: 20051207
  15. PREDNISONE [Concomitant]
     Dosage: ON 03 JUNE 2006 DOSE WAS INCREASED TO 40 MG/DAILY.
     Dates: start: 20051210
  16. ACIPHEX [Concomitant]
     Dates: start: 20051229
  17. NYSTATIN [Concomitant]
     Dates: start: 20060130, end: 20060501
  18. CYCLOSPORINE [Concomitant]
     Dosage: ON 13 MAY 2006 DOSE WAS REDUCED TO 175 MG.
     Dates: start: 20060405, end: 20060706
  19. PAXIL [Concomitant]
     Indication: AGITATION
     Dates: start: 20060413
  20. TRAZODONE HCL [Concomitant]
     Dates: start: 20051201
  21. CARDIZEM [Concomitant]
     Dates: start: 20060429
  22. LOPRESSOR [Concomitant]
     Dates: start: 20060429
  23. ASPIRIN [Concomitant]
     Dates: start: 20051118, end: 20060415

REACTIONS (2)
  - ORTHOSTATIC HYPOTENSION [None]
  - TRANSPLANT REJECTION [None]
